FAERS Safety Report 5381697-9 (Version None)
Quarter: 2007Q3

REPORT INFORMATION
  Report Type: 
  Country: None (occurrence: None)
  Receive Date: 20070705
  Receipt Date: 20070705
  Transmission Date: 20080115
  Serious: Yes (Disabling)
  Sender: FDA-Public Use
  Company Number: None

PATIENT
  Sex: Female
  Weight: 38.5557 kg

DRUGS (2)
  1. TYLENOL W/ CODEINE [Suspect]
     Indication: PROCEDURAL PAIN
     Dosage: ONE TABLET EVERY 4-6 HOURS PO
     Route: 048
     Dates: start: 20070608, end: 20070609
  2. PERCOCET [Suspect]
     Indication: PROCEDURAL PAIN
     Dosage: ONE TABLET EVERY 4-6 HOURS PO
     Route: 048
     Dates: start: 20070608, end: 20070609

REACTIONS (6)
  - BLISTER [None]
  - COUGH [None]
  - DYSPHAGIA [None]
  - OCULAR HYPERAEMIA [None]
  - PHARYNGEAL MASS [None]
  - URTICARIA [None]
